FAERS Safety Report 18061867 (Version 1)
Quarter: 2020Q3

REPORT INFORMATION
  Report Type: Spontaneous
  Country: IL (occurrence: IL)
  Receive Date: 20200723
  Receipt Date: 20200723
  Transmission Date: 20201103
  Serious: Yes (Death, Hospitalization)
  Sender: FDA-Public Use
  Company Number: IL-MYLANLABS-2020M1066579

PATIENT
  Age: 68 Year
  Sex: Male

DRUGS (13)
  1. VANCOMYCIN [Suspect]
     Active Substance: VANCOMYCIN
     Indication: SPINAL CORD INFECTION
     Dosage: 1 GRAM, QD
     Route: 042
  2. IMIPENEM AND CILASTATIN [Suspect]
     Active Substance: CILASTATIN SODIUM\IMIPENEM
     Indication: STAPHYLOCOCCAL INFECTION
     Dosage: UNK UNK, QID TOTAL DAILY DOSE : 2G
     Route: 042
  3. VERAPAMIL [Concomitant]
     Active Substance: VERAPAMIL HYDROCHLORIDE
     Indication: PRODUCT USED FOR UNKNOWN INDICATION
     Route: 065
  4. ADRENALINE                         /00003901/ [Concomitant]
     Active Substance: EPINEPHRINE
     Indication: SUPPORTIVE CARE
     Dosage: 0.2 MICROGRAM/KILOGRAM, QMINUTE
     Route: 042
  5. CEFAZOLIN [Suspect]
     Active Substance: CEFAZOLIN
     Indication: SPINAL CORD INFECTION
  6. INSULIN [Concomitant]
     Active Substance: INSULIN NOS
     Indication: TYPE 2 DIABETES MELLITUS
     Route: 042
  7. IMIPENEM AND CILASTATIN [Suspect]
     Active Substance: CILASTATIN SODIUM\IMIPENEM
     Indication: SPINAL CORD INFECTION
  8. CEFAZOLIN [Suspect]
     Active Substance: CEFAZOLIN
     Indication: STAPHYLOCOCCAL INFECTION
     Dosage: 2 GRAM TWO DAILY DOSES; TOTAL DAILY DOSE : 4G
     Route: 042
  9. CLINDAMYCIN. [Suspect]
     Active Substance: CLINDAMYCIN
     Indication: STAPHYLOCOCCAL INFECTION
     Dosage: 900 MILLIGRAM, TID THREE DAILY DOSES; TOTAL DAILY DOSE : 2.7G
     Route: 042
  10. CEFTRIAXONE. [Concomitant]
     Active Substance: CEFTRIAXONE
     Indication: EVIDENCE BASED TREATMENT
     Dosage: 2 GRAM, QD
     Route: 042
  11. VANCOMYCIN [Suspect]
     Active Substance: VANCOMYCIN
     Indication: STAPHYLOCOCCAL INFECTION
  12. CLINDAMYCIN. [Suspect]
     Active Substance: CLINDAMYCIN
     Indication: SPINAL CORD INFECTION
  13. GLYPRESSIN [Concomitant]
     Active Substance: TERLIPRESSIN
     Indication: SUPPORTIVE CARE
     Dosage: 1.75 MICROGRAM/KILOGRAM, QH
     Route: 042

REACTIONS (1)
  - Drug ineffective [Fatal]
